FAERS Safety Report 8912870 (Version 1)
Quarter: 2012Q4

REPORT INFORMATION
  Report Type: 
  Country: US (occurrence: US)
  Receive Date: 20121116
  Receipt Date: 20121116
  Transmission Date: 20130627
  Serious: Yes (Hospitalization)
  Sender: FDA-Public Use
  Company Number: US-JNJFOC-20121103615

PATIENT
  Sex: Female
  Weight: 56.7 kg

DRUGS (7)
  1. FLEXERIL [Suspect]
     Indication: MYALGIA
     Route: 048
     Dates: start: 2000
  2. TYLENOL 3 [Suspect]
     Indication: MUSCLE SPASMS
     Route: 048
     Dates: start: 2000, end: 2004
  3. CYCLOBENZAPRINE HYDROCHLORIDE [Suspect]
     Indication: MYALGIA
     Route: 048
  4. VOLTAREN [Suspect]
     Indication: PRODUCT USED FOR UNKNOWN INDICATION
     Route: 048
  5. LYRICA [Suspect]
     Indication: MYALGIA
     Route: 048
  6. CELEBREX [Suspect]
     Indication: MYALGIA
     Route: 048
  7. AMRIX [Suspect]
     Indication: MYALGIA
     Route: 048

REACTIONS (9)
  - Renal failure acute [Recovered/Resolved]
  - Intervertebral disc protrusion [Recovered/Resolved]
  - Intervertebral disc injury [Recovered/Resolved]
  - Drug ineffective [Not Recovered/Not Resolved]
  - Feeling abnormal [Recovered/Resolved]
  - Somnolence [Not Recovered/Not Resolved]
  - Adverse drug reaction [Unknown]
  - Nausea [Unknown]
  - Vomiting [Unknown]
